FAERS Safety Report 20344357 (Version 1)
Quarter: 2022Q1

REPORT INFORMATION
  Report Type: Spontaneous
  Country: US (occurrence: US)
  Receive Date: 20220118
  Receipt Date: 20220118
  Transmission Date: 20220423
  Serious: Yes (Other)
  Sender: FDA-Public Use
  Company Number: US-GLAXOSMITHKLINE-US2022GSK007194

PATIENT
  Sex: Male

DRUGS (12)
  1. RANITIDINE [Suspect]
     Active Substance: RANITIDINE
     Indication: Dyspepsia
     Dosage: 150 MG, QD
     Route: 065
     Dates: start: 201101, end: 201901
  2. RANITIDINE [Suspect]
     Active Substance: RANITIDINE
     Indication: Gastritis
     Dosage: 300 MG, QD
     Route: 065
     Dates: start: 201101, end: 201901
  3. RANITIDINE [Suspect]
     Active Substance: RANITIDINE
     Indication: Hiatus hernia
  4. ZANTAC [Suspect]
     Active Substance: RANITIDINE HYDROCHLORIDE
     Indication: Dyspepsia
     Dosage: 150 MG, QD
     Route: 065
     Dates: start: 201101, end: 201901
  5. ZANTAC [Suspect]
     Active Substance: RANITIDINE HYDROCHLORIDE
     Indication: Gastritis
  6. ZANTAC [Suspect]
     Active Substance: RANITIDINE HYDROCHLORIDE
     Indication: Hiatus hernia
  7. RANITIDINE [Suspect]
     Active Substance: RANITIDINE
     Indication: Dyspepsia
     Dosage: 150 MG, QD
     Route: 065
     Dates: start: 201101, end: 201901
  8. RANITIDINE [Suspect]
     Active Substance: RANITIDINE
     Indication: Gastritis
  9. RANITIDINE [Suspect]
     Active Substance: RANITIDINE
     Indication: Hiatus hernia
  10. RANITIDINE [Suspect]
     Active Substance: RANITIDINE
     Indication: Dyspepsia
     Dosage: 150 MG, QD
     Route: 065
     Dates: start: 201101, end: 201901
  11. RANITIDINE [Suspect]
     Active Substance: RANITIDINE
     Indication: Gastritis
     Dosage: 300 MG, QD
     Route: 065
     Dates: start: 201101, end: 201901
  12. RANITIDINE [Suspect]
     Active Substance: RANITIDINE
     Indication: Hiatus hernia

REACTIONS (1)
  - Bladder cancer [Unknown]
